FAERS Safety Report 20014219 (Version 4)
Quarter: 2024Q4

REPORT INFORMATION
  Report Type: Spontaneous
  Country: CA (occurrence: CA)
  Receive Date: 20211029
  Receipt Date: 20241223
  Transmission Date: 20250115
  Serious: Yes (Life-Threatening, Hospitalization, Other)
  Sender: BAUSCH AND LOMB
  Company Number: CA-BAUSCH-BL-2021-035669

PATIENT
  Age: 65 Year
  Sex: Female
  Weight: 69 kg

DRUGS (90)
  1. METFORMIN [Suspect]
     Active Substance: METFORMIN HYDROCHLORIDE
     Indication: Product used for unknown indication
     Route: 048
  2. METFORMIN [Suspect]
     Active Substance: METFORMIN HYDROCHLORIDE
     Route: 048
  3. METFORMIN [Suspect]
     Active Substance: METFORMIN HYDROCHLORIDE
     Route: 030
  4. ZOLPIDEM [Suspect]
     Active Substance: ZOLPIDEM TARTRATE
     Indication: Product used for unknown indication
     Route: 065
  5. ALTACE [Suspect]
     Active Substance: RAMIPRIL
     Indication: Product used for unknown indication
     Route: 048
  6. ALISKIREN HEMIFUMARATE [Suspect]
     Active Substance: ALISKIREN HEMIFUMARATE
     Indication: Off label use
     Route: 065
  7. ALISKIREN HEMIFUMARATE [Suspect]
     Active Substance: ALISKIREN HEMIFUMARATE
     Indication: Microalbuminuria
     Dosage: (4 REGIMENS)
     Route: 048
  8. ALISKIREN HEMIFUMARATE [Suspect]
     Active Substance: ALISKIREN HEMIFUMARATE
     Indication: Hypertension
     Dosage: (4 REGIMENS)
     Route: 048
  9. ALISKIREN [Suspect]
     Active Substance: ALISKIREN
     Indication: Product used for unknown indication
     Route: 048
  10. ALISKIREN [Suspect]
     Active Substance: ALISKIREN
     Route: 048
  11. AMLODIPINE [Suspect]
     Active Substance: AMLODIPINE BESYLATE
     Indication: Product used for unknown indication
     Route: 048
  12. AMLODIPINE BESYLATE [Suspect]
     Active Substance: AMLODIPINE BESYLATE
     Indication: Product used for unknown indication
     Route: 065
  13. AMLODIPINE BESYLATE [Suspect]
     Active Substance: AMLODIPINE BESYLATE
     Route: 048
  14. AMLODIPINE BESYLATE [Suspect]
     Active Substance: AMLODIPINE BESYLATE
     Route: 065
  15. CALCIUM CARBONATE [Suspect]
     Active Substance: CALCIUM CARBONATE
     Indication: Product used for unknown indication
     Route: 065
  16. CALCIUM CARBONATE [Suspect]
     Active Substance: CALCIUM CARBONATE
     Route: 048
  17. CANDESARTAN [Suspect]
     Active Substance: CANDESARTAN
     Indication: Hypertension
     Route: 048
  18. COSENTYX [Suspect]
     Active Substance: SECUKINUMAB
     Indication: Psoriatic arthropathy
     Dosage: (3 REGIMENS)
     Route: 065
  19. COSENTYX [Suspect]
     Active Substance: SECUKINUMAB
     Indication: Psoriasis
     Dosage: (3 REGIMENS)
     Route: 058
  20. COSENTYX [Suspect]
     Active Substance: SECUKINUMAB
     Indication: Hypertension
     Dosage: (3 REGIMENS)
     Route: 065
  21. COSENTYX [Suspect]
     Active Substance: SECUKINUMAB
     Dosage: (3 REGIMENS)
     Route: 058
  22. COSENTYX [Suspect]
     Active Substance: SECUKINUMAB
     Dosage: (3 REGIMENS)
     Route: 065
  23. COSENTYX [Suspect]
     Active Substance: SECUKINUMAB
     Dosage: (3 REGIMENS)
     Route: 058
  24. COSENTYX [Suspect]
     Active Substance: SECUKINUMAB
     Dosage: (3 REGIMENS)
     Route: 058
  25. ERGOCALCIFEROL [Suspect]
     Active Substance: ERGOCALCIFEROL
     Indication: Product used for unknown indication
     Route: 065
  26. IRBESARTAN [Suspect]
     Active Substance: IRBESARTAN
     Indication: Hypertension
     Route: 048
  27. IRBESARTAN [Suspect]
     Active Substance: IRBESARTAN
     Route: 048
  28. IRBESARTAN [Suspect]
     Active Substance: IRBESARTAN
     Route: 048
  29. JANUVIA [Suspect]
     Active Substance: SITAGLIPTIN PHOSPHATE
     Indication: Product used for unknown indication
     Route: 048
  30. LIPITOR [Suspect]
     Active Substance: ATORVASTATIN CALCIUM
     Indication: Product used for unknown indication
     Route: 048
  31. METHOTREXATE [Suspect]
     Active Substance: METHOTREXATE
     Indication: Product used for unknown indication
     Route: 065
  32. METHOTREXATE [Suspect]
     Active Substance: METHOTREXATE
     Route: 064
  33. BISOPROLOL [Suspect]
     Active Substance: BISOPROLOL
     Indication: Product used for unknown indication
     Route: 065
  34. BISOPROLOL [Suspect]
     Active Substance: BISOPROLOL
     Route: 065
  35. ASPIRIN [Suspect]
     Active Substance: ASPIRIN
     Indication: Product used for unknown indication
     Route: 048
  36. ASPIRIN [Suspect]
     Active Substance: ASPIRIN
     Route: 065
  37. ATACAND [Suspect]
     Active Substance: CANDESARTAN CILEXETIL
     Indication: Hypertension
     Route: 048
  38. GLICLAZIDE [Suspect]
     Active Substance: GLICLAZIDE
     Indication: Diabetes mellitus
     Route: 065
  39. GLICLAZIDE [Suspect]
     Active Substance: GLICLAZIDE
     Indication: Blood pressure measurement
     Route: 065
  40. DIPHENHYDRAMINE HYDROCHLORIDE [Suspect]
     Active Substance: DIPHENHYDRAMINE HYDROCHLORIDE
     Indication: Premedication
     Route: 048
  41. ESOMEPRAZOLE MAGNESIUM\NAPROXEN [Suspect]
     Active Substance: ESOMEPRAZOLE MAGNESIUM\NAPROXEN
     Indication: Product used for unknown indication
     Route: 048
  42. GLICLAZIDE [Suspect]
     Active Substance: GLICLAZIDE
     Indication: Diabetes mellitus
     Route: 065
  43. GLICLAZIDE [Suspect]
     Active Substance: GLICLAZIDE
     Indication: Blood pressure measurement
     Route: 065
  44. GRAVOL [Suspect]
     Active Substance: DIMENHYDRINATE
     Indication: Premedication
     Route: 065
  45. GRAVOL [Suspect]
     Active Substance: DIMENHYDRINATE
     Route: 065
  46. LEVOTHYROXINE SODIUM [Suspect]
     Active Substance: LEVOTHYROXINE SODIUM
     Indication: Product used for unknown indication
     Route: 065
  47. LISINOPRIL [Suspect]
     Active Substance: LISINOPRIL
     Indication: Hypertension
     Route: 048
  48. METHYLPREDNISOLONE SODIUM SUCCINATE [Suspect]
     Active Substance: METHYLPREDNISOLONE SODIUM SUCCINATE
     Indication: Premedication
     Route: 042
  49. MORPHINE SULFATE [Suspect]
     Active Substance: MORPHINE SULFATE
     Indication: Product used for unknown indication
     Route: 030
  50. ONDANSETRON HYDROCHLORIDE [Suspect]
     Active Substance: ONDANSETRON HYDROCHLORIDE
     Indication: Product used for unknown indication
     Route: 065
  51. PREDNISONE [Suspect]
     Active Substance: PREDNISONE
     Indication: Product used for unknown indication
     Route: 065
  52. PROCHLORPERAZINE [Suspect]
     Active Substance: PROCHLORPERAZINE
     Indication: Vomiting
     Route: 065
  53. RITUXIMAB [Suspect]
     Active Substance: RITUXIMAB
     Indication: Sjogren^s syndrome
     Dosage: (2 REGIMENS)
     Route: 042
  54. RITUXIMAB [Suspect]
     Active Substance: RITUXIMAB
     Indication: Rheumatoid arthritis
  55. ACETAMINOPHEN [Suspect]
     Active Substance: ACETAMINOPHEN
     Indication: Arthritis
     Route: 048
  56. AMLODIPINE MESYLATE [Suspect]
     Active Substance: AMLODIPINE MESYLATE
     Indication: Product used for unknown indication
     Route: 048
  57. AMLODIPINE MESYLATE [Suspect]
     Active Substance: AMLODIPINE MESYLATE
     Route: 065
  58. AMLODIPINE MESYLATE [Suspect]
     Active Substance: AMLODIPINE MESYLATE
     Route: 048
  59. ACITRETIN [Concomitant]
     Active Substance: ACITRETIN
     Indication: Microalbuminuria
     Route: 065
  60. ACITRETIN [Concomitant]
     Active Substance: ACITRETIN
     Indication: Hypertension
     Route: 065
  61. AMEVIVE [Concomitant]
     Active Substance: ALEFACEPT
     Indication: Microalbuminuria
     Dosage: (2 REGIMENS)
     Route: 030
  62. AMEVIVE [Concomitant]
     Active Substance: ALEFACEPT
     Indication: Hypertension
     Dosage: (2 REGIMEN)
     Route: 065
  63. AMEVIVE [Concomitant]
     Active Substance: ALEFACEPT
     Dosage: POWDER FOR SOLUTION INTRAMUSCULAR, (2 REGIMEN)
     Route: 030
  64. ASPIRIN [Concomitant]
     Active Substance: ASPIRIN
     Indication: Product used for unknown indication
  65. AVAPRO [Concomitant]
     Active Substance: IRBESARTAN
     Indication: Product used for unknown indication
  66. COAL TAR [Concomitant]
     Active Substance: COAL TAR
     Indication: Product used for unknown indication
  67. CYMBALTA [Concomitant]
     Active Substance: DULOXETINE HYDROCHLORIDE
     Indication: Product used for unknown indication
  68. DOVONEX [Concomitant]
     Active Substance: CALCIPOTRIENE
     Indication: Product used for unknown indication
  69. ESOMEPRAZOLE MAGNESIUM [Concomitant]
     Active Substance: ESOMEPRAZOLE MAGNESIUM
     Indication: Product used for unknown indication
     Route: 048
  70. ESOMEPRAZOLE MAGNESIUM [Concomitant]
     Active Substance: ESOMEPRAZOLE MAGNESIUM
     Route: 042
  71. PANTOPRAZOLE MAGNESIUM [Concomitant]
     Active Substance: PANTOPRAZOLE MAGNESIUM
     Indication: Product used for unknown indication
  72. ROSUVASTATIN CALCIUM [Concomitant]
     Active Substance: ROSUVASTATIN CALCIUM
     Indication: Product used for unknown indication
  73. STELARA [Concomitant]
     Active Substance: USTEKINUMAB
     Indication: Product used for unknown indication
     Route: 058
  74. SYNTHROID [Concomitant]
     Active Substance: LEVOTHYROXINE SODIUM
     Indication: Product used for unknown indication
  75. ASCORBIC ACID\ASPIRIN [Concomitant]
     Active Substance: ASCORBIC ACID\ASPIRIN
     Indication: Product used for unknown indication
  76. ASPIRIN [Concomitant]
     Active Substance: ASPIRIN
     Indication: Product used for unknown indication
  77. CYANOCOBALAMIN [Concomitant]
     Active Substance: CYANOCOBALAMIN
     Indication: Product used for unknown indication
  78. DOMPERIDONE MALEATE [Concomitant]
     Active Substance: DOMPERIDONE MALEATE
     Indication: Product used for unknown indication
  79. LEVOTHYROXINE [Concomitant]
     Active Substance: LEVOTHYROXINE
     Indication: Product used for unknown indication
  80. EZETIMIBE [Concomitant]
     Active Substance: EZETIMIBE
     Indication: Product used for unknown indication
  81. GLUCOPHAGE [Concomitant]
     Active Substance: METFORMIN HYDROCHLORIDE
     Indication: Product used for unknown indication
  82. HUMALOG [Concomitant]
     Active Substance: INSULIN LISPRO
     Indication: Product used for unknown indication
  83. HYDROCHLOROTHIAZIDE [Concomitant]
     Active Substance: HYDROCHLOROTHIAZIDE
     Indication: Product used for unknown indication
  84. LANTUS [Concomitant]
     Active Substance: INSULIN GLARGINE
     Indication: Product used for unknown indication
     Route: 058
  85. LEVEMIR [Concomitant]
     Active Substance: INSULIN DETEMIR
     Indication: Product used for unknown indication
     Route: 058
  86. LYRICA [Concomitant]
     Active Substance: PREGABALIN
     Indication: Product used for unknown indication
  87. METHYLPREDNISOLONE ACETATE [Concomitant]
     Active Substance: METHYLPREDNISOLONE ACETATE
     Indication: Product used for unknown indication
  88. PANTOPRAZOLE SODIUM [Concomitant]
     Active Substance: PANTOPRAZOLE SODIUM
     Indication: Product used for unknown indication
  89. TELMISARTAN [Concomitant]
     Active Substance: TELMISARTAN
     Indication: Product used for unknown indication
  90. TYLENOL [Concomitant]
     Active Substance: ACETAMINOPHEN
     Indication: Product used for unknown indication

REACTIONS (52)
  - Adjustment disorder [Not Recovered/Not Resolved]
  - Cerebrovascular accident [Not Recovered/Not Resolved]
  - Coordination abnormal [Not Recovered/Not Resolved]
  - Eating disorder [Not Recovered/Not Resolved]
  - Affect lability [Not Recovered/Not Resolved]
  - Hemiplegia [Not Recovered/Not Resolved]
  - Hemiparesis [Not Recovered/Not Resolved]
  - Anxiety [Not Recovered/Not Resolved]
  - Neurologic neglect syndrome [Not Recovered/Not Resolved]
  - Aphasia [Not Recovered/Not Resolved]
  - Psoriasis [Not Recovered/Not Resolved]
  - Sensory loss [Not Recovered/Not Resolved]
  - Sneezing [Not Recovered/Not Resolved]
  - Sinus congestion [Not Recovered/Not Resolved]
  - Skin haemorrhage [Not Recovered/Not Resolved]
  - Rhinorrhoea [Not Recovered/Not Resolved]
  - Skin exfoliation [Not Recovered/Not Resolved]
  - Carotid artery thrombosis [Not Recovered/Not Resolved]
  - Confusional state [Not Recovered/Not Resolved]
  - Cystitis [Not Recovered/Not Resolved]
  - Dysarthria [Not Recovered/Not Resolved]
  - Dysphagia [Not Recovered/Not Resolved]
  - Fall [Not Recovered/Not Resolved]
  - Influenza [Not Recovered/Not Resolved]
  - Influenza like illness [Not Recovered/Not Resolved]
  - Malaise [Not Recovered/Not Resolved]
  - Motor dysfunction [Not Recovered/Not Resolved]
  - Muscle spasticity [Not Recovered/Not Resolved]
  - Muscular weakness [Not Recovered/Not Resolved]
  - Nasopharyngitis [Not Recovered/Not Resolved]
  - Pain [Not Recovered/Not Resolved]
  - Personality disorder [Not Recovered/Not Resolved]
  - Pneumonia [Not Recovered/Not Resolved]
  - Pyrexia [Not Recovered/Not Resolved]
  - Respiratory tract congestion [Not Recovered/Not Resolved]
  - Sinus disorder [Not Recovered/Not Resolved]
  - Headache [Not Recovered/Not Resolved]
  - Asthenia [Not Recovered/Not Resolved]
  - Vomiting [Not Recovered/Not Resolved]
  - Fatigue [Not Recovered/Not Resolved]
  - Nausea [Not Recovered/Not Resolved]
  - Angina pectoris [Not Recovered/Not Resolved]
  - Arterial occlusive disease [Not Recovered/Not Resolved]
  - Blood pressure increased [Not Recovered/Not Resolved]
  - Cataract [Not Recovered/Not Resolved]
  - Chest discomfort [Not Recovered/Not Resolved]
  - Cough [Not Recovered/Not Resolved]
  - Gangrene [Not Recovered/Not Resolved]
  - Gastrointestinal disorder [Not Recovered/Not Resolved]
  - Palpitations [Not Recovered/Not Resolved]
  - Rheumatoid arthritis [Not Recovered/Not Resolved]
  - Sinusitis [Not Recovered/Not Resolved]
